FAERS Safety Report 5833829-3 (Version None)
Quarter: 2008Q3

REPORT INFORMATION
  Report Type: 
  Country: None (occurrence: None)
  Receive Date: 20080801
  Receipt Date: 20080801
  Transmission Date: 20090109
  Serious: No
  Sender: FDA-Public Use
  Company Number: None

PATIENT
  Sex: Female

DRUGS (1)
  1. HALDOL [Suspect]
     Dosage: 5MG HS PO
     Route: 048
     Dates: start: 20080611, end: 20080731

REACTIONS (1)
  - TREMOR [None]
